FAERS Safety Report 12768494 (Version 1)
Quarter: 2016Q3

REPORT INFORMATION
  Report Type: Spontaneous
  Country: US (occurrence: US)
  Receive Date: 20160921
  Receipt Date: 20160921
  Transmission Date: 20161109
  Serious: No
  Sender: FDA-Public Use
  Company Number: US-PFIZER INC-2016440053

PATIENT
  Sex: Female

DRUGS (2)
  1. LYRICA [Suspect]
     Active Substance: PREGABALIN
     Indication: HERPES ZOSTER
     Dosage: 75 MG, UNK
  2. LYRICA [Suspect]
     Active Substance: PREGABALIN
     Dosage: 100 MG, UNK

REACTIONS (7)
  - Skin discolouration [Unknown]
  - Pain in extremity [Unknown]
  - Impaired work ability [Unknown]
  - Peripheral swelling [Unknown]
  - Burning sensation [Unknown]
  - Impaired driving ability [Unknown]
  - Drug effect delayed [Unknown]
